FAERS Safety Report 25588890 (Version 4)
Quarter: 2025Q3

REPORT INFORMATION
  Report Type: Report from Study
  Country: CN (occurrence: CN)
  Receive Date: 20250722
  Receipt Date: 20250813
  Transmission Date: 20251021
  Serious: Yes (Other)
  Sender: BEIGENE
  Company Number: CN-BEIGENE-BGN-2025-011910

PATIENT
  Age: 63 Year

DRUGS (4)
  1. TISLELIZUMAB [Suspect]
     Active Substance: TISLELIZUMAB
     Indication: Lung neoplasm malignant
     Dosage: 200 MILLIGRAM, Q3WK
  2. PEMETREXED DISODIUM [Suspect]
     Active Substance: PEMETREXED DISODIUM
     Indication: Lung neoplasm malignant
     Dosage: 680 MILLIGRAM, Q3WK
  3. CARBOPLATIN [Suspect]
     Active Substance: CARBOPLATIN
     Indication: Lung neoplasm malignant
     Dosage: 475 MILLIGRAM, Q3WK
  4. CARBOPLATIN [Suspect]
     Active Substance: CARBOPLATIN
     Dosage: 349 MILLIGRAM, Q3WK

REACTIONS (2)
  - Platelet count increased [Recovered/Resolved]
  - Platelet count increased [Not Recovered/Not Resolved]
